FAERS Safety Report 9837758 (Version 1)
Quarter: 2014Q1

REPORT INFORMATION
  Report Type: Spontaneous
  Country: PT (occurrence: DE)
  Receive Date: 20140123
  Receipt Date: 20140123
  Transmission Date: 20141002
  Serious: Yes (Hospitalization, Other)
  Sender: FDA-Public Use
  Company Number: 2014SP000114

PATIENT
  Sex: Female

DRUGS (2)
  1. ZEBINIX (ESLICARBAZEPINE ACETATE) [Suspect]
     Indication: EPILEPSY
     Route: 048
     Dates: start: 201305
  2. LAMICTAL [Concomitant]
     Indication: EPILEPSY

REACTIONS (4)
  - Leukopenia [Recovering/Resolving]
  - Convulsion [Unknown]
  - Diplopia [Recovered/Resolved]
  - Sleep disorder [Not Recovered/Not Resolved]
